FAERS Safety Report 7979342-9 (Version None)
Quarter: 2011Q4

REPORT INFORMATION
  Report Type: 
  Country: None (occurrence: None)
  Receive Date: 20111201
  Receipt Date: 20111121
  Transmission Date: 20120403
  Serious: Yes (Life-Threatening)
  Sender: FDA-Public Use
  Company Number: DSA_48228_2011

PATIENT
  Age: 61 Year
  Sex: Female

DRUGS (2)
  1. VENLAFAXINE [Suspect]
     Indication: MAJOR DEPRESSION
     Dosage: (37.5 MG QD) ; (75 MG QD ORAL)
     Route: 048
  2. TACROLIMUS [Suspect]
     Indication: IMMUNOSUPPRESSION
     Dosage: (DF)

REACTIONS (10)
  - HYPERHIDROSIS [None]
  - DYSARTHRIA [None]
  - CEREBRAL ATROPHY [None]
  - POST PROCEDURAL COMPLICATION [None]
  - ATAXIA [None]
  - CONDITION AGGRAVATED [None]
  - ENCEPHALOPATHY [None]
  - DEPRESSION [None]
  - MUSCLE SPASTICITY [None]
  - DIARRHOEA [None]
